FAERS Safety Report 4859305-2 (Version None)
Quarter: 2005Q4

REPORT INFORMATION
  Report Type: 
  Country: None (occurrence: None)
  Receive Date: 20051219
  Receipt Date: 20041111
  Transmission Date: 20060501
  Serious: No
  Sender: FDA-Public Use
  Company Number: US-GLAXOSMITHKLINE-A0533670A

PATIENT
  Age: 57 Year
  Sex: Female

DRUGS (2)
  1. NICODERM CQ [Suspect]
  2. WELLBUTRIN [Concomitant]

REACTIONS (3)
  - ELEVATED MOOD [None]
  - ENERGY INCREASED [None]
  - FATIGUE [None]
